FAERS Safety Report 5500169-1 (Version None)
Quarter: 2007Q4

REPORT INFORMATION
  Report Type: 
  Country: None (occurrence: None)
  Receive Date: 20071025
  Receipt Date: 20071019
  Transmission Date: 20080405
  Serious: Yes (Life-Threatening, Hospitalization)
  Sender: FDA-Public Use
  Company Number: 2007RL000433

PATIENT
  Age: 88 Year
  Sex: Female

DRUGS (2)
  1. RYTHMOL [Suspect]
     Indication: ATRIAL FIBRILLATION
     Dosage: 300 MG; PO
     Route: 048
     Dates: start: 20070511, end: 20070518
  2. AMIODARONE HCL [Suspect]
     Indication: ATRIAL FIBRILLATION
     Dosage: 200 MG; PO
     Route: 048
     Dates: start: 20070511

REACTIONS (2)
  - ATRIOVENTRICULAR BLOCK COMPLETE [None]
  - SYNCOPE [None]
